FAERS Safety Report 6336100-9 (Version None)
Quarter: 2009Q3

REPORT INFORMATION
  Report Type: 
  Country: None (occurrence: None)
  Receive Date: 20090828
  Receipt Date: 20090828
  Transmission Date: 20100115
  Serious: Yes (Other)
  Sender: FDA-Public Use
  Company Number: None

PATIENT
  Age: 47 Year
  Sex: Male
  Weight: 122.4712 kg

DRUGS (1)
  1. ZICAM COLD REMEDY NASAL PUMP ZICAM [Suspect]
     Indication: NASOPHARYNGITIS
     Dosage: COLD REMEDY TWICE DAILY NASAL
     Route: 045
     Dates: start: 20061001, end: 20071215

REACTIONS (1)
  - ANOSMIA [None]
